FAERS Safety Report 6040624-1 (Version None)
Quarter: 2009Q1

REPORT INFORMATION
  Report Type: 
  Country: None (occurrence: None)
  Receive Date: 20090116
  Receipt Date: 20080506
  Transmission Date: 20090719
  Serious: Yes (Disabling)
  Sender: FDA-Public Use
  Company Number: US-BRISTOL-MYERS SQUIBB COMPANY-14156509

PATIENT
  Age: 42 Year
  Sex: Male

DRUGS (4)
  1. ABILIFY [Suspect]
     Indication: DEPRESSION
     Dosage: 1ST TRIAL 12-JUL-05 TO 15-AUG-05 10MG. 2ND TRIAL 22-SEP-05 TO 6-JUL-06 5MG
     Route: 048
     Dates: start: 20050712, end: 20050815
  2. ZOLOFT [Concomitant]
  3. CYMBALTA [Concomitant]
  4. LEXAPRO [Concomitant]

REACTIONS (1)
  - COGNITIVE DISORDER [None]
